FAERS Safety Report 15262020 (Version 1)
Quarter: 2018Q3

REPORT INFORMATION
  Report Type: Spontaneous
  Country: US (occurrence: US)
  Receive Date: 20180809
  Receipt Date: 20180809
  Transmission Date: 20181010
  Serious: Yes (Other)
  Sender: FDA-Public Use
  Company Number: US-SA-2018SA206618

PATIENT
  Sex: Male

DRUGS (2)
  1. DUPIXENT [Suspect]
     Active Substance: DUPILUMAB
     Dosage: LOADING DOSE
  2. DUPIXENT [Suspect]
     Active Substance: DUPILUMAB
     Dosage: 1ST MAINTENANCE DOSE

REACTIONS (5)
  - Paraesthesia [Unknown]
  - Conjunctivitis [Unknown]
  - Eye irritation [Unknown]
  - Vision blurred [Unknown]
  - Anxiety [Unknown]
